FAERS Safety Report 6303957-7 (Version None)
Quarter: 2009Q3

REPORT INFORMATION
  Report Type: 
  Country: None (occurrence: None)
  Receive Date: 20090810
  Receipt Date: 20090810
  Transmission Date: 20100115
  Serious: Yes (Hospitalization)
  Sender: FDA-Public Use
  Company Number: None

PATIENT
  Age: 81 Year
  Sex: Female
  Weight: 41 kg

DRUGS (15)
  1. DIGOXIN [Suspect]
     Indication: ATRIAL FIBRILLATION
     Dosage: 250 MCG DAILY PO PRIOR TO ADMISSION
     Route: 048
  2. CALCIUM CARBONATE [Concomitant]
  3. METOPROLOL [Concomitant]
  4. MONTELUKAST [Concomitant]
  5. ASPIRIN [Concomitant]
  6. NSOPRAZOLE [Concomitant]
  7. ATORVASTATIN CALCIUM [Concomitant]
  8. DOXAZOSIN [Concomitant]
  9. HYDROCODONE BITARTRATE + ACETAMINOPHEN [Concomitant]
  10. TRAVOPROST [Concomitant]
  11. TRAVOPROST [Concomitant]
  12. OPHTHALMIC [Concomitant]
  13. TRIAMCINOLONE [Concomitant]
  14. IPRATROPIUM INHALER [Concomitant]
  15. WARFARIN [Concomitant]

REACTIONS (10)
  - ASTHENIA [None]
  - COLITIS [None]
  - DEHYDRATION [None]
  - DIARRHOEA [None]
  - DIZZINESS [None]
  - DRUG LEVEL INCREASED [None]
  - GASTRITIS [None]
  - HYPOKALAEMIA [None]
  - HYPONATRAEMIA [None]
  - WEIGHT DECREASED [None]
